FAERS Safety Report 7510500-3 (Version None)
Quarter: 2011Q2

REPORT INFORMATION
  Report Type: 
  Country: None (occurrence: None)
  Receive Date: 20110529
  Receipt Date: 20110523
  Transmission Date: 20111010
  Serious: Yes (Hospitalization)
  Sender: FDA-Public Use
  Company Number: BR-BRISTOL-MYERS SQUIBB COMPANY-15772148

PATIENT
  Age: 52 Year
  Sex: Female
  Weight: 70 kg

DRUGS (3)
  1. FLUOROURACIL [Suspect]
     Indication: ANAL CANCER
     Dosage: D1- D29
     Route: 042
     Dates: start: 20110419
  2. CETUXIMAB [Suspect]
     Indication: ANAL CANCER
     Route: 042
     Dates: start: 20110419, end: 20110426
  3. CISPLATIN [Suspect]
     Indication: ANAL CANCER
     Dosage: D1- D29
     Route: 042
     Dates: start: 20110419

REACTIONS (1)
  - VENOUS THROMBOSIS LIMB [None]
